FAERS Safety Report 24721356 (Version 1)
Quarter: 2024Q4

REPORT INFORMATION
  Report Type: Spontaneous
  Country: CN (occurrence: CN)
  Receive Date: 20241211
  Receipt Date: 20241211
  Transmission Date: 20250115
  Serious: Yes (Life-Threatening, Hospitalization)
  Sender: BAYER HEALTHCARE PHARMACEUTICALS INC.
  Company Number: CN-BAYER-2024A174113

PATIENT
  Age: 53 Year
  Sex: Female

DRUGS (1)
  1. ULTRAVIST [Suspect]
     Active Substance: IOPROMIDE
     Indication: Computerised tomogram abdomen
     Dosage: UNK UNK, ONCE
     Route: 042
     Dates: start: 20241122, end: 20241122

REACTIONS (5)
  - Shock [None]
  - Syncope [None]
  - Blood pressure decreased [None]
  - Heart rate decreased [None]
  - Rash erythematous [None]

NARRATIVE: CASE EVENT DATE: 20241122
